FAERS Safety Report 21450030 (Version 1)
Quarter: 2022Q4

REPORT INFORMATION
  Report Type: Spontaneous
  Country: US (occurrence: None)
  Receive Date: 20221012
  Receipt Date: 20221012
  Transmission Date: 20230113
  Serious: Yes (Hospitalization)
  Sender: FDA-Public Use
  Company Number: None

PATIENT
  Age: 6 Year
  Sex: Male
  Weight: 47.3 kg

DRUGS (1)
  1. ONCASPAR [Suspect]
     Active Substance: PEGASPARGASE
     Dates: end: 20220916

REACTIONS (5)
  - Pancreatitis haemorrhagic [None]
  - Systemic inflammatory response syndrome [None]
  - Coagulopathy [None]
  - Pancytopenia [None]
  - Cardio-respiratory arrest [None]

NARRATIVE: CASE EVENT DATE: 20221004
